FAERS Safety Report 7578816-2 (Version None)
Quarter: 2011Q2

REPORT INFORMATION
  Report Type: 
  Country: None (occurrence: None)
  Receive Date: 20110628
  Receipt Date: 20110617
  Transmission Date: 20111010
  Serious: Yes (Other)
  Sender: FDA-Public Use
  Company Number: US-JNJFOC-20110610628

PATIENT
  Sex: Female

DRUGS (1)
  1. LISTERINE COOLMINT [Suspect]
     Indication: DENTAL DISORDER PROPHYLAXIS
     Dosage: 1 OUNCE
     Route: 048

REACTIONS (3)
  - TOOTH LOSS [None]
  - LOOSE TOOTH [None]
  - OVERDOSE [None]
